FAERS Safety Report 9707844 (Version 1)
Quarter: 2013Q4

REPORT INFORMATION
  Report Type: Spontaneous
  Country: US (occurrence: None)
  Receive Date: 20131122
  Receipt Date: 20131122
  Transmission Date: 20140711
  Serious: No
  Sender: FDA-Public Use
  Company Number: None

PATIENT
  Age: 51 Year
  Sex: Female

DRUGS (7)
  1. SAPHRIS [Suspect]
     Indication: PARANOIA
     Dosage: 10 MG. QHS/BEDTIME SUBLINGUAL
     Route: 060
     Dates: start: 20131111, end: 20131118
  2. SAPHRIS [Suspect]
     Indication: DELUSION
     Dosage: 10 MG. QHS/BEDTIME SUBLINGUAL
     Route: 060
     Dates: start: 20131111, end: 20131118
  3. LAMICTAL [Concomitant]
  4. PRISTIQ [Concomitant]
  5. ADDERAL [Concomitant]
  6. KLONOPIN [Concomitant]
  7. LORAZEPAN [Concomitant]

REACTIONS (3)
  - Muscle spasms [None]
  - Paraesthesia [None]
  - Hypoaesthesia [None]
